FAERS Safety Report 21095239 (Version 2)
Quarter: 2022Q3

REPORT INFORMATION
  Report Type: Report from Study
  Country: US (occurrence: US)
  Receive Date: 20220718
  Receipt Date: 20220729
  Transmission Date: 20221027
  Serious: Yes (Hospitalization)
  Sender: FDA-Public Use
  Company Number: US-XERIS PHARMACEUTICALS-2022XER00247

PATIENT
  Age: 81 Year
  Sex: Male

DRUGS (1)
  1. KEVEYIS [Suspect]
     Active Substance: DICHLORPHENAMIDE
     Indication: Paralysis
     Dosage: 1 TABLET (50 MG), 2X/DAY
     Route: 048
     Dates: start: 20220701, end: 202207

REACTIONS (6)
  - Feeling abnormal [Recovered/Resolved]
  - Hypokinesia [Not Recovered/Not Resolved]
  - Sensory disturbance [Unknown]
  - Dizziness [Unknown]
  - Confusional state [Recovered/Resolved]
  - Speech disorder [Not Recovered/Not Resolved]

NARRATIVE: CASE EVENT DATE: 20220701
